FAERS Safety Report 21325746 (Version 1)
Quarter: 2022Q3

REPORT INFORMATION
  Report Type: Spontaneous
  Country: US (occurrence: US)
  Receive Date: 20220913
  Receipt Date: 20220913
  Transmission Date: 20221027
  Serious: Yes (Other)
  Sender: FDA-Public Use
  Company Number: US-BEH-2022149421

PATIENT
  Age: 10 Year
  Sex: Female
  Weight: 61.451 kg

DRUGS (1)
  1. HUMATE-P [Suspect]
     Active Substance: HUMAN COAGULATION FACTOR VIII/VON WILLEBRAND FACTOR COMPLEX
     Dosage: 20 MILLILITER
     Route: 065
     Dates: start: 20220824

REACTIONS (5)
  - COVID-19 [Unknown]
  - Myalgia [Unknown]
  - Headache [Unknown]
  - Infusion site pain [Unknown]
  - Epistaxis [Unknown]
